FAERS Safety Report 4339473-1 (Version None)
Quarter: 2004Q2

REPORT INFORMATION
  Report Type: 
  Country: None (occurrence: None)
  Receive Date: 20040415
  Receipt Date: 20040302
  Transmission Date: 20050107
  Serious: Yes (Hospitalization, Other)
  Sender: FDA-Public Use
  Company Number: US-BRISTOL-MYERS SQUIBB COMPANY-12523759

PATIENT
  Age: 45 Year
  Sex: Female

DRUGS (9)
  1. REYATAZ [Suspect]
     Indication: HIV INFECTION
     Route: 048
     Dates: start: 20031223
  2. ACYCLOVIR [Suspect]
     Indication: TREMOR
     Route: 042
     Dates: start: 20040127, end: 20040203
  3. VIREAD [Suspect]
     Indication: HIV INFECTION
     Route: 048
     Dates: start: 20031222, end: 20040228
  4. NORVIR [Suspect]
     Indication: HIV INFECTION
     Dosage: HAS TAKEN IN THE PAST
     Route: 048
     Dates: start: 20031222
  5. ZIDOVUDINE [Suspect]
     Indication: HIV INFECTION
     Dosage: HAS TAKEN IN THE PAST
     Route: 048
     Dates: start: 20031222
  6. PRILOSEC [Concomitant]
     Dates: start: 20040119
  7. ESTRATEST [Concomitant]
     Dosage: ESTRATEST OR ATARAX
     Dates: start: 20040318
  8. ATARAX [Concomitant]
  9. BACTRIM [Concomitant]

REACTIONS (4)
  - DRUG HYPERSENSITIVITY [None]
  - RASH PUSTULAR [None]
  - TREMOR [None]
  - VASCULITIS [None]
